FAERS Safety Report 4747566-X (Version None)
Quarter: 2005Q3

REPORT INFORMATION
  Report Type: 
  Country: None (occurrence: None)
  Receive Date: 20050818
  Receipt Date: 20040901
  Transmission Date: 20060218
  Serious: No
  Sender: FDA-Public Use
  Company Number: US-BRISTOL-MYERS SQUIBB COMPANY-12689972

PATIENT
  Age: 70 Year
  Sex: Male
  Weight: 73 kg

DRUGS (7)
  1. TEQUIN [Suspect]
     Indication: BRONCHITIS
     Route: 048
     Dates: start: 20040801
  2. ADVAIR DISKUS 100/50 [Concomitant]
     Dosage: INHALER
     Route: 055
  3. NEURONTIN [Concomitant]
  4. INDERAL [Concomitant]
  5. PREVACID [Concomitant]
  6. CARDURA [Concomitant]
  7. CLARINEX [Concomitant]

REACTIONS (1)
  - PLEURITIC PAIN [None]
